FAERS Safety Report 22276516 (Version 2)
Quarter: 2023Q4

REPORT INFORMATION
  Report Type: Spontaneous
  Country: AU (occurrence: None)
  Receive Date: 20230503
  Receipt Date: 20231117
  Transmission Date: 20240110
  Serious: Yes (Other)
  Sender: FDA-Public Use
  Company Number: AU-ROCHE-3342443

PATIENT
  Age: 75 Year
  Sex: Female

DRUGS (12)
  1. ACTEMRA [Suspect]
     Active Substance: TOCILIZUMAB
     Indication: Product used for unknown indication
     Route: 058
     Dates: start: 20230119, end: 20230502
  2. AMLO [Concomitant]
     Dates: start: 20190409
  3. LIPITOR [Concomitant]
     Active Substance: ATORVASTATIN CALCIUM
     Dates: start: 20190409
  4. NEXIUM [Concomitant]
     Active Substance: ESOMEPRAZOLE MAGNESIUM
     Dates: start: 20190409
  5. ZOLOFT [Concomitant]
     Active Substance: SERTRALINE HYDROCHLORIDE
     Dates: start: 20190409
  6. FOLIC ACID [Concomitant]
     Active Substance: FOLIC ACID
     Dates: start: 20190417
  7. METHOTREXATE [Concomitant]
     Active Substance: METHOTREXATE
     Dates: start: 20190417, end: 202201
  8. METHOTREXATE [Concomitant]
     Active Substance: METHOTREXATE
     Dates: start: 20230109
  9. ACETAMINOPHEN\CODEINE PHOSPHATE [Concomitant]
     Active Substance: ACETAMINOPHEN\CODEINE PHOSPHATE
  10. NORTRIPTYLINE [Concomitant]
     Active Substance: NORTRIPTYLINE
     Dates: start: 20210215
  11. ARAVA [Concomitant]
     Active Substance: LEFLUNOMIDE
     Dates: start: 20210624
  12. HUMIRA [Concomitant]
     Active Substance: ADALIMUMAB

REACTIONS (1)
  - Psoriasis [Unknown]

NARRATIVE: CASE EVENT DATE: 20230502
